FAERS Safety Report 6513016-6 (Version None)
Quarter: 2009Q4

REPORT INFORMATION
  Report Type: 
  Country: None (occurrence: None)
  Receive Date: 20091222
  Receipt Date: 20091222
  Transmission Date: 20100525
  Serious: Yes (Life-Threatening, Hospitalization)
  Sender: FDA-Public Use
  Company Number: None

PATIENT
  Age: 82 Year
  Sex: Male
  Weight: 90.7 kg

DRUGS (3)
  1. WARFARIN [Suspect]
     Indication: DEEP VEIN THROMBOSIS
     Dosage: 2 MG OTHER PO
     Route: 048
     Dates: start: 20081221, end: 20091102
  2. WARFARIN [Suspect]
     Indication: PULMONARY EMBOLISM
     Dosage: 2 MG OTHER PO
     Route: 048
     Dates: start: 20081221, end: 20091102
  3. ASPIRIN [Suspect]
     Dosage: 325 MG EVERY DAY PO
     Route: 048

REACTIONS (4)
  - ANAEMIA [None]
  - HAEMATURIA [None]
  - HAEMORRHAGE [None]
  - INTERNATIONAL NORMALISED RATIO INCREASED [None]
